FAERS Safety Report 17417623 (Version 2)
Quarter: 2020Q1

REPORT INFORMATION
  Report Type: Report from Study
  Country: None (occurrence: CA)
  Receive Date: 20200214
  Receipt Date: 20200306
  Transmission Date: 20200409
  Serious: Yes (Other)
  Sender: FDA-Public Use
  Company Number: CA-ABBVIE-20K-028-3273096-00

PATIENT
  Sex: Male

DRUGS (1)
  1. HUMIRA [Suspect]
     Active Substance: ADALIMUMAB
     Indication: PSORIASIS
     Route: 058
     Dates: start: 20130823, end: 201908

REACTIONS (3)
  - Myocardial rupture [Recovered/Resolved]
  - Coronary artery disease [Unknown]
  - Ischaemic cardiomyopathy [Unknown]

NARRATIVE: CASE EVENT DATE: 2019
